FAERS Safety Report 5096453-9 (Version None)
Quarter: 2006Q3

REPORT INFORMATION
  Report Type: 
  Country: None (occurrence: None)
  Receive Date: 20060830
  Receipt Date: 20060821
  Transmission Date: 20061208
  Serious: Yes (Disabling, Other)
  Sender: FDA-Public Use
  Company Number: GB-2006-024048

PATIENT
  Age: 18 Year
  Sex: Female
  Weight: 68 kg

DRUGS (1)
  1. YASMIN [Suspect]
     Indication: ORAL CONTRACEPTION
     Dosage: ORAL
     Route: 048
     Dates: start: 20060321, end: 20060711

REACTIONS (3)
  - BLOOD POTASSIUM DECREASED [None]
  - CONVULSION [None]
  - MIGRAINE [None]
